FAERS Safety Report 16377123 (Version 1)
Quarter: 2019Q3

REPORT INFORMATION
  Report Type: Spontaneous
  Country: US (occurrence: US)
  Receive Date: 20190530
  Receipt Date: 20190530
  Transmission Date: 20191004
  Serious: No
  Sender: FDA-Public Use
  Company Number: None

PATIENT
  Age: 66 Year
  Sex: Male
  Weight: 112.5 kg

DRUGS (4)
  1. OXYBUTYNIN. [Suspect]
     Active Substance: OXYBUTYNIN CHLORIDE
     Indication: URINARY INCONTINENCE
     Dosage: ?          QUANTITY:1 TABLET(S);?
     Route: 048
  2. LISINOPRIL. [Concomitant]
     Active Substance: LISINOPRIL
  3. SIMVASTATIN. [Concomitant]
     Active Substance: SIMVASTATIN
  4. FINASTERIDE. [Concomitant]
     Active Substance: FINASTERIDE

REACTIONS (2)
  - Urticaria [None]
  - Mental status changes [None]

NARRATIVE: CASE EVENT DATE: 20190429
